FAERS Safety Report 26133710 (Version 1)
Quarter: 2025Q4

REPORT INFORMATION
  Report Type: Spontaneous
  Country: RU (occurrence: RU)
  Receive Date: 20251209
  Receipt Date: 20251209
  Transmission Date: 20260119
  Serious: Yes (Death, Life-Threatening, Hospitalization, Other)
  Sender: UNICHEM
  Company Number: RU-UNICHEM LABORATORIES LIMITED-UNI-2025-RU-004029

PATIENT

DRUGS (1)
  1. LAMOTRIGINE [Suspect]
     Active Substance: LAMOTRIGINE
     Indication: Idiopathic generalised epilepsy
     Dosage: UNK
     Route: 065

REACTIONS (12)
  - Acute respiratory failure [Fatal]
  - Obliterative bronchiolitis [Fatal]
  - Pneumonia [Fatal]
  - Erythema multiforme [Fatal]
  - Ulcerative keratitis [Fatal]
  - Cardiac failure [Fatal]
  - Acute kidney injury [Fatal]
  - Brain oedema [Fatal]
  - Bronchiectasis [Fatal]
  - Keratitis [Fatal]
  - Bronchitis [Fatal]
  - Stevens-Johnson syndrome [Fatal]
